FAERS Safety Report 9418328 (Version 1)
Quarter: 2013Q3

REPORT INFORMATION
  Report Type: Spontaneous
  Country: US (occurrence: US)
  Receive Date: 20130725
  Receipt Date: 20130725
  Transmission Date: 20140515
  Serious: No
  Sender: FDA-Public Use
  Company Number: US-B.I. PHARMACEUTICALS,INC./RIDGEFIELD-2013-BI-21363BP

PATIENT
  Age: 76 Year
  Sex: Female
  Weight: 79 kg

DRUGS (4)
  1. COMBIVENT [Suspect]
     Indication: CHRONIC OBSTRUCTIVE PULMONARY DISEASE
     Dosage: STRENGTH: 20 MCG / 100 MCG; DAILY DOSE: 80 MCG / 400 MCG
     Route: 055
     Dates: start: 201303
  2. SYMBICORT [Concomitant]
     Indication: EMPHYSEMA
     Dosage: 160/4.5; DAILY DOSE: 2 PUFF
     Route: 055
  3. LISINOPRIL HCTZ [Concomitant]
     Indication: HYPERTENSION
     Dosage: 20 MG/ 25 MG; DAILY DOSE: 20 MG / 25 MG
     Route: 048
  4. ALBUTEROL NEBULIZER [Concomitant]
     Indication: EMPHYSEMA
     Route: 055

REACTIONS (2)
  - Dry mouth [Not Recovered/Not Resolved]
  - Throat irritation [Not Recovered/Not Resolved]
